FAERS Safety Report 6058876-0 (Version None)
Quarter: 2009Q1

REPORT INFORMATION
  Report Type: 
  Country: None (occurrence: None)
  Receive Date: 20090128
  Receipt Date: 20090128
  Transmission Date: 20090719
  Serious: Yes (Life-Threatening, Hospitalization, Other)
  Sender: FDA-Public Use
  Company Number: None

PATIENT
  Age: 32 Year
  Sex: Female
  Weight: 62.5964 kg

DRUGS (1)
  1. MIRENA [Suspect]
     Indication: CONTRACEPTION
     Dosage: 1 IUD VAG, ALMOST 2 YEARS
     Route: 067
     Dates: start: 20070120, end: 20081228

REACTIONS (17)
  - ANXIETY [None]
  - APPARENT DEATH [None]
  - ASTHENIA [None]
  - BACK PAIN [None]
  - BALANCE DISORDER [None]
  - DECREASED INTEREST [None]
  - DIZZINESS [None]
  - FATIGUE [None]
  - HEART RATE DECREASED [None]
  - HEART RATE IRREGULAR [None]
  - ILL-DEFINED DISORDER [None]
  - LOSS OF CONTROL OF LEGS [None]
  - MOOD ALTERED [None]
  - NERVE INJURY [None]
  - PALPITATIONS [None]
  - PRESYNCOPE [None]
  - TREMOR [None]
